FAERS Safety Report 8774662 (Version 2)
Quarter: 2012Q4

REPORT INFORMATION
  Report Type: Report from Study
  Country: US (occurrence: US)
  Receive Date: 20120907
  Receipt Date: 20120923
  Transmission Date: 20130627
  Serious: Yes (Hospitalization, Other)
  Sender: FDA-Public Use
  Company Number: US-ABBOTT-12P-163-0974046-00

PATIENT
  Age: 43 Year
  Sex: Female

DRUGS (19)
  1. HUMIRA 40 MG/0.8 ML PEN [Suspect]
     Indication: CROHN^S DISEASE
     Dates: start: 2007, end: 2008
  2. HUMIRA 40 MG/0.8 ML PEN [Suspect]
     Dates: start: 201204
  3. SYNTHROID [Suspect]
     Indication: THYROID DISORDER
     Dosage: UNKNOWN
  4. SYNTHROID [Suspect]
  5. BENAZEPRIL [Suspect]
     Indication: PRODUCT USED FOR UNKNOWN INDICATION
     Dosage: UNKNOWN
  6. UNSPECIFIED INGREDIENT [Suspect]
     Indication: PRODUCT USED FOR UNKNOWN INDICATION
     Dosage: Unknown
  7. ENTOCORT [Concomitant]
     Indication: CROHN^S DISEASE
  8. NORCO [Concomitant]
     Indication: PAIN
     Dosage: 10/325 mg
  9. MERCAPTOPURINE [Concomitant]
     Indication: CROHN^S DISEASE
  10. LOMOTIL [Concomitant]
     Indication: PRODUCT USED FOR UNKNOWN INDICATION
     Dosage: 2.5/0.025 mg 1 or 2 QID
  11. VERAPAMIL [Concomitant]
     Indication: HYPERTENSION
     Dosage: 240mg Every day
  12. FENTANYL PATCH [Concomitant]
     Indication: PAIN
     Dosage: Changed every 3 days
  13. PROMETHAZINE [Concomitant]
     Indication: PRODUCT USED FOR UNKNOWN INDICATION
     Dosage: 1 every 6 hours as required
  14. FLAGYL [Concomitant]
     Indication: PRODUCT USED FOR UNKNOWN INDICATION
     Dosage: Unknown
  15. XANAX [Concomitant]
     Indication: PRODUCT USED FOR UNKNOWN INDICATION
  16. DOXEPIN [Concomitant]
     Indication: PRODUCT USED FOR UNKNOWN INDICATION
     Dosage: every day at night
  17. NEXIUM [Concomitant]
     Indication: PRODUCT USED FOR UNKNOWN INDICATION
     Dosage: 1 every morning
  18. APRISCO [Concomitant]
     Indication: CROHN^S DISEASE
  19. CATAPRES [Concomitant]
     Indication: PRODUCT USED FOR UNKNOWN INDICATION
     Dosage: UNKNOWN

REACTIONS (20)
  - Gastrointestinal disorder [Not Recovered/Not Resolved]
  - Abdominal pain [Not Recovered/Not Resolved]
  - Clostridium difficile infection [Not Recovered/Not Resolved]
  - Drug ineffective [Unknown]
  - Nausea [Not Recovered/Not Resolved]
  - Vomiting [Not Recovered/Not Resolved]
  - Diarrhoea [Recovering/Resolving]
  - Arthralgia [Not Recovered/Not Resolved]
  - Cholecystectomy [Unknown]
  - Discomfort [Not Recovered/Not Resolved]
  - Osteonecrosis [Not Recovered/Not Resolved]
  - Neck pain [Unknown]
  - Scar [Unknown]
  - Crohn^s disease [Unknown]
  - Monoplegia [Recovered/Resolved]
  - Localised infection [Unknown]
  - Diplegia [Not Recovered/Not Resolved]
  - Thyroid function test abnormal [Unknown]
  - Gastric disorder [Unknown]
  - Procedural complication [Not Recovered/Not Resolved]
